FAERS Safety Report 17176795 (Version 4)
Quarter: 2020Q1

REPORT INFORMATION
  Report Type: Spontaneous
  Country: CA (occurrence: CA)
  Receive Date: 20191219
  Receipt Date: 20200101
  Transmission Date: 20200409
  Serious: Yes (Other)
  Sender: FDA-Public Use
  Company Number: CA-ADVANZ PHARMA-201912003001

PATIENT

DRUGS (5)
  1. LEFLUNOMIDE. [Suspect]
     Active Substance: LEFLUNOMIDE
     Dosage: 20 MG, BID, 20MG DIE
     Route: 065
     Dates: start: 20181126, end: 20181204
  2. METHOTREXATE. [Concomitant]
     Active Substance: METHOTREXATE
     Indication: DERMATITIS ATOPIC
     Dosage: AD 20MG Q WEEK
     Dates: start: 20190123
  3. HYDROXYCHLOROQUINE [Suspect]
     Active Substance: HYDROXYCHLOROQUINE
     Dosage: UNK
     Route: 065
  4. PREDNISONE. [Suspect]
     Active Substance: PREDNISONE
     Indication: DERMATITIS ATOPIC
     Dosage: 15 MG, BID, 15MG DIE
     Route: 065
     Dates: start: 201810
  5. SULFASALAZINE. [Concomitant]
     Active Substance: SULFASALAZINE
     Indication: DERMATITIS ATOPIC
     Dosage: 500MG AD 200 BID
     Dates: start: 20190919

REACTIONS (4)
  - Pancreatitis [Unknown]
  - Contraindicated product administered [Unknown]
  - Macular degeneration [Unknown]
  - Drug ineffective [Unknown]
